FAERS Safety Report 20387958 (Version 1)
Quarter: 2022Q1

REPORT INFORMATION
  Report Type: Spontaneous
  Country: US (occurrence: US)
  Receive Date: 20220128
  Receipt Date: 20220128
  Transmission Date: 20220424
  Serious: No
  Sender: FDA-Public Use
  Company Number: US-ALLERGAN-2136298US

PATIENT
  Age: 59 Year
  Sex: Male
  Weight: 78.458 kg

DRUGS (30)
  1. BOTOX [Suspect]
     Active Substance: ONABOTULINUMTOXINA
     Indication: Post herpetic neuralgia
     Dosage: 10 UNITS, SINGLE
     Dates: start: 20210802, end: 20210802
  2. BOTOX [Suspect]
     Active Substance: ONABOTULINUMTOXINA
     Dosage: 10 UNITS, SINGLE
     Dates: start: 20210802, end: 20210802
  3. BOTOX [Suspect]
     Active Substance: ONABOTULINUMTOXINA
     Dosage: 10 UNITS, SINGLE
     Dates: start: 20210802, end: 20210802
  4. BOTOX [Suspect]
     Active Substance: ONABOTULINUMTOXINA
     Dosage: 5 UNITS, SINGLE
     Dates: start: 20210802, end: 20210802
  5. BOTOX [Suspect]
     Active Substance: ONABOTULINUMTOXINA
     Dosage: 5 UNITS, SINGLE
     Dates: start: 20210802, end: 20210802
  6. LUMIGAN [Concomitant]
     Active Substance: BIMATOPROST
  7. TIMOLOL MALEATE [Concomitant]
     Active Substance: TIMOLOL MALEATE
  8. ALBUTEROL SULFATE [Concomitant]
     Active Substance: ALBUTEROL SULFATE
  9. AZELASTINE [Concomitant]
     Active Substance: AZELASTINE
  10. BRIMONIDINE [Concomitant]
     Active Substance: BRIMONIDINE TARTRATE
  11. CLOTRIMAZOLE [Concomitant]
     Active Substance: CLOTRIMAZOLE
  12. CLOTRIMAZOLE [Concomitant]
     Active Substance: CLOTRIMAZOLE
  13. DENTA PEROXIDE [Concomitant]
  14. ELIQUIS [Concomitant]
     Active Substance: APIXABAN
  15. FLUTICASONE PROPIONATE [Concomitant]
     Active Substance: FLUTICASONE PROPIONATE
  16. HYDROCORTISONE [Concomitant]
     Active Substance: HYDROCORTISONE
  17. LANSOPRAZOLE [Concomitant]
     Active Substance: LANSOPRAZOLE
  18. LEVOFLOXACIN [Concomitant]
     Active Substance: LEVOFLOXACIN
  19. LIDOCAINE [Concomitant]
     Active Substance: LIDOCAINE
     Dosage: 5 %
  20. LIDOCAINE VISCOUS [Concomitant]
     Active Substance: LIDOCAINE HYDROCHLORIDE
  21. LORAZEPAM [Concomitant]
     Active Substance: LORAZEPAM
  22. LOTEMAX [Concomitant]
     Active Substance: LOTEPREDNOL ETABONATE
  23. METRONIDAZOLE [Concomitant]
     Active Substance: METRONIDAZOLE
  24. NYSTATIN [Concomitant]
     Active Substance: NYSTATIN
  25. OMEPRAZOLE [Concomitant]
     Active Substance: OMEPRAZOLE
     Dosage: UNK MG
  26. PREDNISOLONE SODIUM PHOSPHATE [Concomitant]
     Active Substance: PREDNISOLONE SODIUM PHOSPHATE
  27. PROAIR HFA [Concomitant]
     Active Substance: ALBUTEROL SULFATE
  28. DEXAMETHASONE\TOBRAMYCIN [Concomitant]
     Active Substance: DEXAMETHASONE\TOBRAMYCIN
  29. TRIAMCINOLONE ACETONIDE [Concomitant]
     Active Substance: TRIAMCINOLONE ACETONIDE
  30. ZALEPLON [Concomitant]
     Active Substance: ZALEPLON

REACTIONS (6)
  - Off label use [Unknown]
  - Swelling [Unknown]
  - Hypoaesthesia oral [Unknown]
  - Paraesthesia oral [Unknown]
  - Eyelid ptosis [Unknown]
  - Asthenia [Unknown]

NARRATIVE: CASE EVENT DATE: 20210802
